FAERS Safety Report 16399680 (Version 3)
Quarter: 2020Q2

REPORT INFORMATION
  Report Type: Spontaneous
  Country: US (occurrence: US)
  Receive Date: 20190606
  Receipt Date: 20200520
  Transmission Date: 20200713
  Serious: Yes (Other)
  Sender: FDA-Public Use
  Company Number: US-SA-2019SA150294

PATIENT
  Age: 64 Year
  Sex: Female

DRUGS (2)
  1. LANTUS SOLOSTAR [Suspect]
     Active Substance: INSULIN GLARGINE
     Dosage: UNK
     Route: 065
  2. LANTUS SOLOSTAR [Suspect]
     Active Substance: INSULIN GLARGINE
     Indication: DIABETES MELLITUS
     Dosage: 20 UNITS + 26 UNITS, AM + PM
     Route: 065

REACTIONS (4)
  - Inappropriate schedule of product administration [Unknown]
  - Visual impairment [Unknown]
  - Vision blurred [Unknown]
  - Cataract operation [Unknown]

NARRATIVE: CASE EVENT DATE: 20190515
